FAERS Safety Report 8668832 (Version 5)
Quarter: 2013Q4

REPORT INFORMATION
  Report Type: Report from Study
  Country: CA (occurrence: CA)
  Receive Date: 20120717
  Receipt Date: 20131212
  Transmission Date: 20140711
  Serious: Yes (Death, Hospitalization, Other)
  Sender: FDA-Public Use
  Company Number: PHHY2012CA050895

PATIENT
  Age: 68 Year
  Sex: Female

DRUGS (3)
  1. SANDOSTATIN LAR [Suspect]
     Indication: NEUROENDOCRINE CARCINOMA METASTATIC
     Dosage: 30 MG, ONCE A MONTH
     Route: 030
     Dates: start: 20120404, end: 20120628
  2. SANDOSTATIN LAR [Suspect]
     Indication: METASTATIC CARCINOID TUMOUR
  3. AFINITOR [Suspect]
     Indication: NEUROENDOCRINE TUMOUR
     Dosage: 10 MG, QD
     Route: 048
     Dates: start: 201311

REACTIONS (21)
  - Death [Fatal]
  - Dehydration [Unknown]
  - Influenza [Unknown]
  - Myelodysplastic syndrome [Unknown]
  - Spinal column stenosis [Unknown]
  - Injection site mass [Unknown]
  - Vision blurred [Not Recovered/Not Resolved]
  - Eye irritation [Not Recovered/Not Resolved]
  - Influenza like illness [Unknown]
  - Muscular weakness [Unknown]
  - Cough [Unknown]
  - Speech disorder [Unknown]
  - Arthralgia [Unknown]
  - Drug intolerance [Unknown]
  - Headache [Not Recovered/Not Resolved]
  - Fatigue [Not Recovered/Not Resolved]
  - Nausea [Unknown]
  - Dizziness [Unknown]
  - Flushing [Unknown]
  - Asthenia [Unknown]
  - Diarrhoea [Unknown]
